FAERS Safety Report 4994413-7 (Version None)
Quarter: 2006Q2

REPORT INFORMATION
  Report Type: 
  Country: None (occurrence: None)
  Receive Date: 20060503
  Receipt Date: 20060420
  Transmission Date: 20061013
  Serious: Yes (Hospitalization, Other)
  Sender: FDA-Public Use
  Company Number: 2006056046

PATIENT
  Age: 56 Year
  Sex: Male

DRUGS (2)
  1. SUTENT [Suspect]
     Indication: RENAL CANCER METASTATIC
     Dosage: 200 MG (50 MG, 1 IN 1 D)
     Dates: start: 20060407
  2. ANTIHYPERTENSIVES (ANTIHYPERTENSIVES) [Concomitant]

REACTIONS (7)
  - APHAGIA [None]
  - BODY TEMPERATURE INCREASED [None]
  - CHILLS [None]
  - MALAISE [None]
  - NAUSEA [None]
  - RADIATION PNEUMONITIS [None]
  - WHITE BLOOD CELL COUNT DECREASED [None]
